FAERS Safety Report 6160197-2 (Version None)
Quarter: 2009Q2

REPORT INFORMATION
  Report Type: 
  Country: None (occurrence: None)
  Receive Date: 20090420
  Receipt Date: 20090410
  Transmission Date: 20091009
  Serious: Yes (Other)
  Sender: FDA-Public Use
  Company Number: A0779421A

PATIENT
  Age: 55 Year
  Sex: Male
  Weight: 102.3 kg

DRUGS (2)
  1. AVANDIA [Suspect]
     Dosage: 4MG PER DAY
     Route: 048
     Dates: start: 20031015, end: 20070101
  2. GLUCOPHAGE [Concomitant]
     Dates: start: 20040801, end: 20080601

REACTIONS (4)
  - CARDIAC DISORDER [None]
  - DECREASED ACTIVITY [None]
  - DYSPNOEA [None]
  - MYOCARDIAL INFARCTION [None]
